FAERS Safety Report 7036427-1 (Version None)
Quarter: 2010Q4

REPORT INFORMATION
  Report Type: 
  Country: None (occurrence: None)
  Receive Date: 20101010
  Receipt Date: 20101005
  Transmission Date: 20110411
  Serious: Yes (Hospitalization)
  Sender: FDA-Public Use
  Company Number: DE-BRISTOL-MYERS SQUIBB COMPANY-15246036

PATIENT
  Age: 26 Day
  Sex: Male
  Weight: 3 kg

DRUGS (2)
  1. AMPHOTERICIN B [Suspect]
     Indication: SYSTEMIC CANDIDA
     Route: 042
     Dates: start: 20100605, end: 20100610
  2. TEICOPLANIN [Suspect]
     Indication: NEONATAL INFECTION
     Route: 042
     Dates: start: 20100605, end: 20100610

REACTIONS (4)
  - BLOOD ALKALINE PHOSPHATASE INCREASED [None]
  - LIVER DISORDER [None]
  - METABOLIC ACIDOSIS [None]
  - THROMBOCYTOPENIA [None]
